FAERS Safety Report 17405602 (Version 1)
Quarter: 2020Q1

REPORT INFORMATION
  Report Type: Spontaneous
  Country: GB (occurrence: GB)
  Receive Date: 20200212
  Receipt Date: 20200212
  Transmission Date: 20200409
  Serious: Yes (Disabling, Other)
  Sender: FDA-Public Use
  Company Number: GB-AUROBINDO-AUR-APL-2020-006615

PATIENT
  Age: 25 Year
  Sex: Female
  Weight: 80 kg

DRUGS (1)
  1. ARIPIPRAZOLE. [Suspect]
     Active Substance: ARIPIPRAZOLE
     Indication: SCHIZOAFFECTIVE DISORDER
     Dosage: 10 MILLIGRAM
     Route: 048
     Dates: start: 201706

REACTIONS (1)
  - Oculogyric crisis [Not Recovered/Not Resolved]

NARRATIVE: CASE EVENT DATE: 201910
